FAERS Safety Report 5649618-9 (Version None)
Quarter: 2008Q1

REPORT INFORMATION
  Report Type: 
  Country: None (occurrence: None)
  Receive Date: 20080304
  Receipt Date: 20080229
  Transmission Date: 20080703
  Serious: Yes (Hospitalization)
  Sender: FDA-Public Use
  Company Number: FR-WYE-G01172508

PATIENT
  Sex: Female
  Weight: 24.8 kg

DRUGS (3)
  1. ADVIL [Suspect]
  2. CODEINE PHOSPHATE HEMIHYDRATE [Suspect]
     Dosage: UNKWOWN
     Route: 048
  3. COLCHIMAX [Suspect]
     Route: 048

REACTIONS (4)
  - ABDOMINAL PAIN UPPER [None]
  - LIPASE INCREASED [None]
  - NEUTROPHIL COUNT DECREASED [None]
  - WHITE BLOOD CELL COUNT DECREASED [None]
